FAERS Safety Report 12853330 (Version 2)
Quarter: 2018Q2

REPORT INFORMATION
  Report Type: Spontaneous
  Country: US (occurrence: US)
  Receive Date: 20161017
  Receipt Date: 20180524
  Transmission Date: 20180711
  Serious: Yes (Other)
  Sender: FDA-Public Use
  Company Number: US-JAZZ-2016-US-013919

PATIENT
  Age: 21 Year
  Sex: Female

DRUGS (31)
  1. VITAMIN D2 [Concomitant]
     Active Substance: ERGOCALCIFEROL
  2. BOTOX COSMETIC [Concomitant]
     Active Substance: ONABOTULINUMTOXINA
  3. L-ARGININE [Concomitant]
     Active Substance: ARGININE
  4. OXAPROZIN. [Concomitant]
     Active Substance: OXAPROZIN
  5. XYREM [Suspect]
     Active Substance: SODIUM OXYBATE
     Indication: CATAPLEXY
  6. TRAZODONE [Concomitant]
     Active Substance: TRAZODONE HYDROCHLORIDE
  7. BACLOFEN. [Concomitant]
     Active Substance: BACLOFEN
  8. CORAL CALCIUM [Concomitant]
     Active Substance: DIETARY SUPPLEMENT
  9. VITAMIN C [Concomitant]
     Active Substance: ASCORBIC ACID
  10. MIDOL [Concomitant]
     Active Substance: IBUPROFEN
  11. FLUTICASONE PROPIONATE. [Concomitant]
     Active Substance: FLUTICASONE PROPIONATE
  12. NORETHINDRONE. [Concomitant]
     Active Substance: NORETHINDRONE
  13. CYANOCOBALAMIN. [Concomitant]
     Active Substance: CYANOCOBALAMIN
  14. HYDROCODONE/ACETAMINOPHEN [Concomitant]
     Active Substance: ACETAMINOPHEN\HYDROCODONE
  15. MINOCYCLINE [Concomitant]
     Active Substance: MINOCYCLINE\MINOCYCLINE HYDROCHLORIDE
  16. CYCLOBENZAPRINE. [Concomitant]
     Active Substance: CYCLOBENZAPRINE
  17. COENZYME Q10 [Concomitant]
     Active Substance: UBIDECARENONE
  18. MAXALT [Concomitant]
     Active Substance: RIZATRIPTAN BENZOATE
  19. TOPIRAMATE. [Concomitant]
     Active Substance: TOPIRAMATE
  20. XYREM [Suspect]
     Active Substance: SODIUM OXYBATE
     Indication: NARCOLEPSY
     Dosage: 4.5 G, BID
     Route: 048
     Dates: start: 201605
  21. CYMBALTA [Suspect]
     Active Substance: DULOXETINE HYDROCHLORIDE
     Indication: PRODUCT USED FOR UNKNOWN INDICATION
  22. GABAPENTIN. [Concomitant]
     Active Substance: GABAPENTIN
  23. LEVOTHYROXINE. [Concomitant]
     Active Substance: LEVOTHYROXINE
  24. PANTOPRAZOLE SODIUM. [Concomitant]
     Active Substance: PANTOPRAZOLE SODIUM
  25. DEXTROAMPHETAMINE. [Concomitant]
     Active Substance: DEXTROAMPHETAMINE
  26. ACETYL L-CARNITINE HCL [Concomitant]
  27. NUVIGIL [Concomitant]
     Active Substance: ARMODAFINIL
  28. LAMICTAL [Concomitant]
     Active Substance: LAMOTRIGINE
  29. KIRKLANDS CHILDRENS ALLER TEC [Concomitant]
     Active Substance: CETIRIZINE HYDROCHLORIDE
  30. AMITIZA [Concomitant]
     Active Substance: LUBIPROSTONE
  31. ONDANSETRON HCL [Concomitant]
     Active Substance: ONDANSETRON HYDROCHLORIDE

REACTIONS (7)
  - Nausea [Unknown]
  - Depression [Recovering/Resolving]
  - Vision blurred [Unknown]
  - Migraine [Not Recovered/Not Resolved]
  - Dizziness [Unknown]
  - Suicidal ideation [Unknown]
  - Insomnia [Unknown]

NARRATIVE: CASE EVENT DATE: 2016
